FAERS Safety Report 13530302 (Version 1)
Quarter: 2017Q2

REPORT INFORMATION
  Report Type: Spontaneous
  Country: US (occurrence: US)
  Receive Date: 20170509
  Receipt Date: 20170509
  Transmission Date: 20170830
  Serious: Yes (Other)
  Sender: FDA-Public Use
  Company Number: US-TEVA-766070USA

PATIENT
  Age: 67 Year
  Sex: Male
  Weight: 79.3 kg

DRUGS (15)
  1. IPRATROPIUM BROMIDE, SALBUTAMOL [Concomitant]
     Indication: CHRONIC OBSTRUCTIVE PULMONARY DISEASE
     Dosage: 100/20 MICROGRAMS 1 PUFF INHALED EVERY 6 HOURS
     Route: 055
  2. COTRIMOXAZOLE [Concomitant]
     Active Substance: SULFAMETHOXAZOLE\TRIMETHOPRIM
     Dosage: 400/80 MILLIGRAMS ONCE DAILY
  3. SALBUTAMOL [Concomitant]
     Active Substance: ALBUTEROL
     Indication: DYSPNOEA
     Dosage: 90 MICROGRAMS 2 PUFFS INHALED EVERY 6 HOURS AS NEEDED
     Route: 055
  4. VORICONAZOLE. [Interacting]
     Active Substance: VORICONAZOLE
     Indication: ANTIFUNGAL TREATMENT
     Route: 048
  5. AZATHIOPRINE. [Concomitant]
     Active Substance: AZATHIOPRINE
     Indication: POLYCHONDRITIS
     Route: 048
  6. TAMSULOSIN [Concomitant]
     Active Substance: TAMSULOSIN
     Indication: BENIGN PROSTATIC HYPERPLASIA
     Route: 065
  7. TRAMADOL. [Concomitant]
     Active Substance: TRAMADOL
     Indication: PAIN
     Dosage: 50 MILLIGRAMS 1-2 TABLETS EVERY 6 HOURS AS NEEDED
     Route: 065
  8. OMEPRAZOLE DELAYED RELEASE CAPSULES,10 MG, 20 MG AND 30 MG [Suspect]
     Active Substance: OMEPRAZOLE
     Route: 065
  9. VORICONAZOLE. [Interacting]
     Active Substance: VORICONAZOLE
     Indication: ANTIFUNGAL TREATMENT
     Dosage: LATER DECREASED TO 200 MG ORALLY EVERY 12 HOURS
     Route: 048
  10. NIFEDIPINE. [Concomitant]
     Active Substance: NIFEDIPINE
     Indication: HYPERTENSION
     Route: 065
  11. VALACICLOVIR [Concomitant]
     Active Substance: VALACYCLOVIR HYDROCHLORIDE
  12. PREDNISONE. [Interacting]
     Active Substance: PREDNISONE
     Indication: POLYCHONDRITIS
     Route: 065
  13. CREON [Concomitant]
     Active Substance: PANCRELIPASE AMYLASE\PANCRELIPASE LIPASE\PANCRELIPASE PROTEASE
     Indication: PANCREATITIS CHRONIC
     Dosage: 48000 UNITS 3 TIMES A DAY WITH MEALS
     Route: 065
  14. SENNOSIDES. [Concomitant]
     Active Substance: SENNOSIDES
     Indication: CONSTIPATION
     Route: 065
  15. BUDESONIDE, FORMOTEROL [Concomitant]
     Indication: CHRONIC OBSTRUCTIVE PULMONARY DISEASE
     Dosage: 80/4.5 MICROGRAMS 2 PUFFS INHALED TWICE DAI
     Route: 055

REACTIONS (4)
  - Hallucination, visual [Unknown]
  - Suicidal ideation [Unknown]
  - Confusional state [Recovering/Resolving]
  - Drug interaction [Unknown]
